FAERS Safety Report 7382523-9 (Version None)
Quarter: 2011Q1

REPORT INFORMATION
  Report Type: 
  Country: None (occurrence: None)
  Receive Date: 20110329
  Receipt Date: 20110322
  Transmission Date: 20110831
  Serious: Yes (Hospitalization, Other)
  Sender: FDA-Public Use
  Company Number: US-BAYER-2011-017849

PATIENT
  Sex: Female

DRUGS (2)
  1. UNCODEABLE ^UNCLASSIFIABLE^ [Concomitant]
  2. BETASERON [Suspect]
     Indication: RELAPSING-REMITTING MULTIPLE SCLEROSIS
     Dosage: 8 MIU, QOD
     Route: 058
     Dates: start: 20100921

REACTIONS (6)
  - HEADACHE [None]
  - HEART RATE DECREASED [None]
  - DIZZINESS [None]
  - VISUAL ACUITY REDUCED [None]
  - DIPLOPIA [None]
  - PAIN [None]
